FAERS Safety Report 11243684 (Version 1)
Quarter: 2015Q3

REPORT INFORMATION
  Report Type: Spontaneous
  Country: US (occurrence: US)
  Receive Date: 20150707
  Receipt Date: 20150707
  Transmission Date: 20151125
  Serious: No
  Sender: FDA-Public Use
  Company Number: US-KALEO, INC-EVZI20150002

PATIENT
  Sex: Male

DRUGS (2)
  1. NALOXONE [Suspect]
     Active Substance: NALOXONE
     Indication: OVERDOSE
     Dates: start: 20150412, end: 20150412
  2. EVZIO [Suspect]
     Active Substance: NALOXONE HYDROCHLORIDE
     Indication: OVERDOSE
     Dates: start: 20150412, end: 20150412

REACTIONS (3)
  - Confusional state [None]
  - Drug withdrawal syndrome [None]
  - Anger [None]

NARRATIVE: CASE EVENT DATE: 20150412
